FAERS Safety Report 11784327 (Version 1)
Quarter: 2015Q4

REPORT INFORMATION
  Report Type: Report from Study
  Country: KR (occurrence: KR)
  Receive Date: 20151128
  Receipt Date: 20151128
  Transmission Date: 20160305
  Serious: Yes (Hospitalization)
  Sender: FDA-Public Use
  Company Number: KR-B.I. PHARMACEUTICALS,INC./RIDGEFIELD-2015-BI-30088RK

PATIENT
  Age: 77 Year
  Sex: Male

DRUGS (1)
  1. GILOTRIF [Suspect]
     Active Substance: AFATINIB
     Indication: NON-SMALL CELL LUNG CANCER
     Dosage: 40 MG
     Route: 048
     Dates: start: 20150520, end: 20151109

REACTIONS (6)
  - Duodenal ulcer [Not Recovered/Not Resolved]
  - Paronychia [Not Recovered/Not Resolved]
  - Nasal discomfort [Recovered/Resolved]
  - Diarrhoea [Recovered/Resolved]
  - Scab [Recovered/Resolved]
  - Rash [Recovered/Resolved]

NARRATIVE: CASE EVENT DATE: 20150527
